FAERS Safety Report 9276585 (Version 2)
Quarter: 2013Q2

REPORT INFORMATION
  Report Type: Spontaneous
  Country: US (occurrence: US)
  Receive Date: 20130507
  Receipt Date: 20130523
  Transmission Date: 20140414
  Serious: No
  Sender: FDA-Public Use
  Company Number: US-PFIZER INC-2013141448

PATIENT
  Age: 74 Year
  Sex: Female
  Weight: 52.15 kg

DRUGS (2)
  1. LYRICA [Suspect]
     Indication: NEUROPATHY PERIPHERAL
     Dosage: 75 MG, AS NEEDED
     Dates: start: 2012, end: 201304
  2. LISINOPRIL W/HYDROCHLOROTHIAZIDE [Concomitant]
     Indication: BLOOD PRESSURE ABNORMAL
     Dosage: 10/12.5 MG, 1X/DAY

REACTIONS (3)
  - Wrong technique in drug usage process [Unknown]
  - Burning sensation [Unknown]
  - Pain [Unknown]
